FAERS Safety Report 5363184-7 (Version None)
Quarter: 2007Q2

REPORT INFORMATION
  Report Type: 
  Country: None (occurrence: None)
  Receive Date: 20070620
  Receipt Date: 20070612
  Transmission Date: 20071010
  Serious: Yes (Other)
  Sender: FDA-Public Use
  Company Number: PHMT2007CA01393

PATIENT
  Sex: Female

DRUGS (1)
  1. LIORESAL [Suspect]
     Indication: MULTIPLE SCLEROSIS
     Dosage: 40 MG, QID
     Route: 048

REACTIONS (3)
  - GASTROENTERITIS [None]
  - HYPOTENSION [None]
  - MYOCARDIAL INFARCTION [None]
